FAERS Safety Report 21059559 (Version 3)
Quarter: 2022Q3

REPORT INFORMATION
  Report Type: Spontaneous
  Country: JP (occurrence: JP)
  Receive Date: 20220708
  Receipt Date: 20220920
  Transmission Date: 20221027
  Serious: Yes (Hospitalization, Other)
  Sender: FDA-Public Use
  Company Number: JP-AMGEN-JPNSP2022115577

PATIENT
  Age: 87 Year
  Sex: Female

DRUGS (9)
  1. EVENITY [Suspect]
     Active Substance: ROMOSOZUMAB-AQQG
     Indication: Osteoporosis
     Dosage: 210 MILLIGRAM, QMO
     Route: 058
  2. BEZAFIBRATE [Concomitant]
     Active Substance: BEZAFIBRATE
     Dosage: UNK
  3. ENALAPRIL [Concomitant]
     Active Substance: ENALAPRIL
     Dosage: UNK
  4. AMLODIPINE [Concomitant]
     Active Substance: AMLODIPINE BESYLATE
     Dosage: UNK
  5. Eurodin [Concomitant]
     Dosage: UNK
  6. BELSOMRA [Concomitant]
     Active Substance: SUVOREXANT
     Dosage: UNK
  7. IFENPRODIL [Concomitant]
     Active Substance: IFENPRODIL
     Dosage: UNK
  8. MIROGABALIN BESYLATE [Concomitant]
     Active Substance: MIROGABALIN BESYLATE
     Dosage: UNK
  9. ELDECALCITOL [Concomitant]
     Active Substance: ELDECALCITOL
     Dosage: UNK

REACTIONS (3)
  - Femoral neck fracture [Recovered/Resolved]
  - Fall [Unknown]
  - Gait disturbance [Unknown]

NARRATIVE: CASE EVENT DATE: 20200929
